FAERS Safety Report 7343453-1 (Version None)
Quarter: 2011Q1

REPORT INFORMATION
  Report Type: 
  Country: None (occurrence: None)
  Receive Date: 20110310
  Receipt Date: 20110203
  Transmission Date: 20110831
  Serious: Yes (Hospitalization)
  Sender: FDA-Public Use
  Company Number: US-BAYER-201034730NA

PATIENT
  Sex: Female

DRUGS (3)
  1. YASMIN [Suspect]
     Indication: PRODUCT USED FOR UNKNOWN INDICATION
     Route: 048
     Dates: start: 20010101, end: 20051105
  2. ACIPHEX [Concomitant]
  3. EFFEXOR [Concomitant]

REACTIONS (10)
  - MYALGIA [None]
  - CONSTIPATION [None]
  - OEDEMA PERIPHERAL [None]
  - GASTROOESOPHAGEAL REFLUX DISEASE [None]
  - PAIN [None]
  - PULMONARY EMBOLISM [None]
  - DYSPEPSIA [None]
  - OESOPHAGITIS [None]
  - GASTRITIS [None]
  - HIATUS HERNIA [None]
